FAERS Safety Report 18506271 (Version 1)
Quarter: 2020Q4

REPORT INFORMATION
  Report Type: Spontaneous
  Country: IT (occurrence: IT)
  Receive Date: 20201116
  Receipt Date: 20201116
  Transmission Date: 20210114
  Serious: Yes (Other)
  Sender: FDA-Public Use
  Company Number: IT-009507513-2010ITA002290

PATIENT
  Sex: Male

DRUGS (1)
  1. PEMBROLIZUMAB. [Suspect]
     Active Substance: PEMBROLIZUMAB
     Indication: TRANSITIONAL CELL CARCINOMA
     Dosage: 200, Q3W (REPORTED AS G1G21)
     Dates: start: 20190508, end: 20200807

REACTIONS (3)
  - Rash erythematous [Unknown]
  - Target skin lesion [Unknown]
  - Biopsy skin abnormal [Unknown]
